FAERS Safety Report 6643962-4 (Version None)
Quarter: 2010Q1

REPORT INFORMATION
  Report Type: 
  Country: None (occurrence: None)
  Receive Date: 20100317
  Receipt Date: 20100305
  Transmission Date: 20100710
  Serious: Yes (Hospitalization)
  Sender: FDA-Public Use
  Company Number: 008816

PATIENT
  Age: 59 Year
  Sex: Female
  Weight: 63 kg

DRUGS (11)
  1. PLETAL [Suspect]
     Indication: CEREBRAL INFARCTION
     Dosage: 200 MG  ORAL
     Route: 048
     Dates: start: 20090101
  2. MEPTIN (PROCATEROL HYDROCHLORIDE) 10 UG [Suspect]
     Dosage: RESPIRATORY
     Route: 055
  3. MICARDIS [Suspect]
     Dosage: 40 MG, QAM; ORAL
     Route: 048
  4. AMLODIPINE BESYLATE [Suspect]
     Dosage: 5 MG, QAM; ORAL
     Route: 048
  5. ALSETIN (PRAVASTATIN SODIUM) TABLET, 10 MG [Suspect]
     Dosage: 10 MG, QPM; ORAL
     Route: 048
  6. GASPORT (FAMOTIDINE) TABLET, 20 MG [Suspect]
     Dosage: 40 MG,  ORAL
     Route: 048
  7. ONON (PRANLUKAST) CAPSULE, 112.5 MG [Suspect]
     Dosage: 450 MG,  ORAL
     Route: 048
  8. MUCODYNE (CARBOCISTEINE) TABLET, 500 MG [Suspect]
     Dosage: 1500 MG; ORAL
     Route: 048
  9. FLUTIDE DISKUS (FLUTICASONE PROPIONATE) [Suspect]
     Dosage: PRN; RESPIRATORY
     Route: 055
  10. INTAL [Suspect]
     Dosage: RESPIRATORY
     Route: 055
  11. MAOTO (HERBAL EXTRACTS NOS) [Concomitant]

REACTIONS (5)
  - ASTHMA [None]
  - EOSINOPHILIC PNEUMONIA [None]
  - LYMPHOCYTE STIMULATION TEST POSITIVE [None]
  - RESPIRATORY DISTRESS [None]
  - VASCULITIS [None]
